FAERS Safety Report 22313447 (Version 5)
Quarter: 2024Q2

REPORT INFORMATION
  Report Type: Report from Study
  Country: IT (occurrence: IT)
  Receive Date: 20230512
  Receipt Date: 20240621
  Transmission Date: 20240716
  Serious: Yes (Hospitalization, Other)
  Sender: FDA-Public Use
  Company Number: None

PATIENT
  Age: 15 Year
  Sex: Male
  Weight: 50 kg

DRUGS (8)
  1. CYCLOPHOSPHAMIDE [Suspect]
     Active Substance: CYCLOPHOSPHAMIDE
     Dosage: 5 DOSES, 1 EVERY 12 HOURS FROM 300 MG, DOSAGE FORM: INJECTION/INFUSION
     Route: 042
     Dates: start: 20230414, end: 20230416
  2. METHOTREXATE SODIUM [Suspect]
     Active Substance: METHOTREXATE SODIUM
     Dosage: 12 MG IT, DOSAGE FORM: INFUSION
     Route: 037
     Dates: start: 20230412
  3. METHOTREXATE SODIUM [Suspect]
     Active Substance: METHOTREXATE SODIUM
     Dosage: 1500 MG OF WHICH 150 MG ADMINISTERED IV IN 30, 1350 MG IV (IN 2130)
     Route: 042
     Dates: start: 20230412, end: 20230414
  4. ONCASPAR [Suspect]
     Active Substance: PEGASPARGASE
     Indication: Acute lymphocytic leukaemia recurrent
     Dosage: SINGLE ADMINISTRATION 1500 UI
     Route: 042
     Dates: start: 20230418, end: 20230418
  5. VINCRISTINE [Suspect]
     Active Substance: VINCRISTINE
     Dosage: TWO 2-MG ADMINISTRATIONS IV PUSH THE FIRST (ON) 12/04 THE SECOND (ON) 18/04/2023 (ITALIA)
     Route: 042
     Dates: start: 20230412, end: 20230418
  6. CYTARABINE [Suspect]
     Active Substance: CYTARABINE
     Dosage: 30 MG IT
     Route: 037
     Dates: start: 20230412
  7. CYTARABINE [Suspect]
     Active Substance: CYTARABINE
     Indication: Acute lymphocytic leukaemia recurrent
     Dosage: 2 DOSES OF 3000 MG 1 EVERY 12H
     Route: 042
     Dates: start: 20230417, end: 20230417
  8. METHYLPREDNISOLONE [Suspect]
     Active Substance: METHYLPREDNISOLONE
     Dosage: 10 MG IT, SOLUBLE (OFF-LABEL USE FOR UNAPPROVED ROUTE OF ADMINISTRATION)
     Route: 037
     Dates: start: 20230412

REACTIONS (1)
  - Febrile bone marrow aplasia [Recovering/Resolving]

NARRATIVE: CASE EVENT DATE: 20230421
